FAERS Safety Report 9144516 (Version 8)
Quarter: 2013Q3

REPORT INFORMATION
  Report Type: Spontaneous
  Country: US (occurrence: US)
  Receive Date: 20130306
  Receipt Date: 20130705
  Transmission Date: 20140515
  Serious: Yes (Hospitalization, Other)
  Sender: FDA-Public Use
  Company Number: US-ROCHE-1057219

PATIENT
  Age: 23 Year
  Sex: Male
  Weight: 81.72 kg

DRUGS (6)
  1. ACCUTANE [Suspect]
     Indication: ACNE
     Dosage: FOR 5 MONTHS
     Route: 048
     Dates: start: 1993
  2. ACCUTANE [Suspect]
     Route: 048
     Dates: start: 199601
  3. ACCUTANE [Suspect]
     Route: 048
     Dates: start: 199806, end: 199808
  4. ACCUTANE [Suspect]
     Route: 048
     Dates: start: 20010228
  5. ACCUTANE [Suspect]
     Dosage: FOR 2 MONTHS
     Route: 048
     Dates: start: 1995
  6. ACCUTANE [Suspect]
     Route: 048
     Dates: end: 2006

REACTIONS (17)
  - Crohn^s disease [Unknown]
  - Colitis ulcerative [Unknown]
  - Large intestine perforation [Unknown]
  - Perirectal abscess [Unknown]
  - Anal fistula [Unknown]
  - Depression [Unknown]
  - Inflammatory bowel disease [Unknown]
  - Intestinal haemorrhage [Unknown]
  - Pyoderma gangrenosum [Unknown]
  - Colonic fistula [Unknown]
  - Dry skin [Unknown]
  - Cheilitis [Unknown]
  - Arthritis [Unknown]
  - Oropharyngeal pain [Unknown]
  - Oral pain [Unknown]
  - Nasopharyngitis [Unknown]
  - Ankylosing spondylitis [Unknown]
